FAERS Safety Report 9433757 (Version 2)
Quarter: 2014Q1

REPORT INFORMATION
  Report Type: Spontaneous
  Country: FR (occurrence: None)
  Receive Date: 20130729
  Receipt Date: 20140228
  Transmission Date: 20141002
  Serious: Yes (Other)
  Sender: FDA-Public Use
  Company Number: 1811893

PATIENT
  Age: 32 Year
  Sex: Female

DRUGS (4)
  1. DOCETAXEL [Suspect]
     Indication: PRODUCT USED FOR UNKNOWN INDICATION
     Dosage: INTRAVENOUS (NOT OTHERWISE SPECIFIED)
     Route: 042
     Dates: start: 20130425, end: 20130425
  2. APREPITANT [Suspect]
     Indication: PREMEDICATION
     Route: 048
     Dates: start: 20130425, end: 20130427
  3. ONDANSETRON [Suspect]
     Indication: PREMEDICATION
     Dosage: INTRAVENOUS (NOT OTHERWISE SPECIFIED)
     Route: 042
     Dates: start: 20130425, end: 20130425
  4. PREDNISOLONE [Suspect]
     Indication: PREMEDICATION
     Route: 048
     Dates: start: 20130424, end: 20130426

REACTIONS (8)
  - Vaginal infection [None]
  - Diarrhoea [None]
  - Arthralgia [None]
  - Myalgia [None]
  - Bone pain [None]
  - Abdominal pain [None]
  - Rash maculo-papular [None]
  - Mucosal inflammation [None]
